FAERS Safety Report 10487326 (Version 1)
Quarter: 2014Q4

REPORT INFORMATION
  Report Type: Spontaneous
  Country: IT (occurrence: IT)
  Receive Date: 20141001
  Receipt Date: 20141001
  Transmission Date: 20150528
  Serious: Yes (Hospitalization)
  Sender: FDA-Public Use
  Company Number: CHPA2014IT012795

PATIENT
  Age: 20 Year
  Sex: Male

DRUGS (8)
  1. ACECLOFENAC [Suspect]
     Active Substance: ACECLOFENAC
     Dosage: 1500 MG, TOTAL
     Dates: start: 20140815, end: 20140815
  2. AERIUS [Suspect]
     Active Substance: DESLORATADINE
     Dosage: 10 DF, TOTAL
     Route: 048
     Dates: start: 20140815, end: 20140815
  3. TACHIPIRINA [Suspect]
     Active Substance: ACETAMINOPHEN
     Dosage: 8 DF, TOTAL
     Dates: start: 20140815, end: 20140815
  4. INFLUMED [Suspect]
     Active Substance: ACETAMINOPHEN\CAFFEINE\CHLORPHENIRAMINE MALEATE\ISOPROPAMIDE IODIDE
     Dosage: 4 DF, TOTAL
     Dates: start: 20140815, end: 20140815
  5. IBUPROFEN. [Suspect]
     Active Substance: IBUPROFEN
     Dosage: 1000 MG, TOTAL
     Dates: start: 20140815, end: 20140815
  6. DELTACORTENE [Suspect]
     Active Substance: PREDNISONE
     Dosage: 3 DF, TOTAL
     Dates: start: 20140815, end: 20140815
  7. ASPIRINA [Suspect]
     Active Substance: ASPIRIN
     Dosage: 5 DF, TOTAL
     Dates: start: 20140815, end: 20140815
  8. TRANEX [Suspect]
     Active Substance: TRANEXAMIC ACID
     Dosage: 5 DF, TOTAL
     Dates: start: 20140815, end: 20140815

REACTIONS (2)
  - Drug abuse [None]
  - Suicide attempt [Recovered/Resolved]

NARRATIVE: CASE EVENT DATE: 20140815
